FAERS Safety Report 4276216-4 (Version None)
Quarter: 2004Q1

REPORT INFORMATION
  Report Type: 
  Country: None (occurrence: None)
  Receive Date: 20040121
  Receipt Date: 20030530
  Transmission Date: 20041129
  Serious: No
  Sender: FDA-Public Use
  Company Number: US-GLAXOSMITHKLINE-A0410506A

PATIENT
  Sex: Female

DRUGS (1)
  1. ZIAGEN [Suspect]
     Route: 048

REACTIONS (3)
  - HYPERSENSITIVITY [None]
  - PYREXIA [None]
  - VIRAEMIA [None]
